FAERS Safety Report 20778498 (Version 1)
Quarter: 2022Q2

REPORT INFORMATION
  Report Type: Spontaneous
  Country: US (occurrence: US)
  Receive Date: 20220503
  Receipt Date: 20220503
  Transmission Date: 20220720
  Serious: Yes (Other)
  Sender: FDA-Public Use
  Company Number: US-AMNEAL PHARMACEUTICALS-2021-AMRX-04188

PATIENT
  Sex: Male
  Weight: 7.483 kg

DRUGS (3)
  1. VIGABATRIN [Suspect]
     Active Substance: VIGABATRIN
     Indication: Infantile spasms
     Dosage: 300 MILLIGRAM (6 ML), 2 /DAY FOR 3 DAYS
     Route: 048
     Dates: start: 2021, end: 2021
  2. VIGABATRIN [Suspect]
     Active Substance: VIGABATRIN
     Dosage: 400 MILLIGRAM (8 ML), 2 /DAY FOR 3 DAYS
     Route: 048
     Dates: start: 2021, end: 2021
  3. VIGABATRIN [Suspect]
     Active Substance: VIGABATRIN
     Dosage: 500 MILLIGRAM (10 ML), 2 /DAY THEREAFTER
     Route: 048
     Dates: start: 2021

REACTIONS (2)
  - Seizure [Unknown]
  - Therapy cessation [Unknown]

NARRATIVE: CASE EVENT DATE: 20210101
